FAERS Safety Report 25148227 (Version 1)
Quarter: 2025Q2

REPORT INFORMATION
  Report Type: Spontaneous
  Country: BR (occurrence: BR)
  Receive Date: 20250402
  Receipt Date: 20250402
  Transmission Date: 20250717
  Serious: Yes (Hospitalization)
  Sender: JOHNSON AND JOHNSON
  Company Number: BR-JNJFOC-20250386826

PATIENT
  Sex: Male
  Weight: 86 kg

DRUGS (1)
  1. ERLEADA [Suspect]
     Active Substance: APALUTAMIDE
     Indication: Metastases to lung
     Route: 048
     Dates: start: 202408, end: 202410

REACTIONS (2)
  - Syncope [Unknown]
  - Arrhythmia [Unknown]
